FAERS Safety Report 13264866 (Version 1)
Quarter: 2017Q1

REPORT INFORMATION
  Report Type: Spontaneous
  Country: US (occurrence: US)
  Receive Date: 20170223
  Receipt Date: 20170223
  Transmission Date: 20170428
  Serious: No
  Sender: FDA-Public Use
  Company Number: US-EMD SERONO-8143546

PATIENT
  Age: 65 Year
  Sex: Female

DRUGS (7)
  1. VITAMIN D3 [Concomitant]
     Active Substance: CHOLECALCIFEROL
     Indication: VITAMIN D DEFICIENCY
  2. PLAQUENIL                          /00072602/ [Concomitant]
     Active Substance: HYDROXYCHLOROQUINE DIPHOSPHATE
     Indication: CONNECTIVE TISSUE DISORDER
  3. ZOLOFT [Concomitant]
     Active Substance: SERTRALINE HYDROCHLORIDE
     Indication: PRODUCT USED FOR UNKNOWN INDICATION
  4. BACLOFEN. [Concomitant]
     Active Substance: BACLOFEN
     Indication: PRODUCT USED FOR UNKNOWN INDICATION
  5. AMPYRA [Suspect]
     Active Substance: DALFAMPRIDINE
     Indication: MULTIPLE SCLEROSIS
     Route: 048
  6. VITAMIN B12 [Concomitant]
     Active Substance: CYANOCOBALAMIN
     Indication: VITAMIN B12 DEFICIENCY
  7. REBIF [Suspect]
     Active Substance: INTERFERON BETA-1A
     Indication: MULTIPLE SCLEROSIS
     Route: 058

REACTIONS (11)
  - Diplegia [Unknown]
  - Gait disturbance [Unknown]
  - Joint vibration [Unknown]
  - Therapeutic response unexpected [Recovering/Resolving]
  - Influenza like illness [Unknown]
  - Abdominal discomfort [Unknown]
  - Myalgia [Unknown]
  - Frequent bowel movements [Unknown]
  - Gait spastic [Unknown]
  - Hypoaesthesia [Unknown]
  - Antibody test positive [Unknown]

NARRATIVE: CASE EVENT DATE: 201510
